FAERS Safety Report 10207976 (Version 1)
Quarter: 2014Q2

REPORT INFORMATION
  Report Type: Spontaneous
  Country: SA (occurrence: None)
  Receive Date: 20140527
  Receipt Date: 20140527
  Transmission Date: 20141212
  Serious: Yes (Hospitalization)
  Sender: FDA-Public Use
  Company Number: ABR_01657_2014

PATIENT
  Age: 46 Year
  Sex: Male

DRUGS (2)
  1. LAMOTRIGINE [Suspect]
     Indication: PRODUCT USED FOR UNKNOWN INDICATION
     Dosage: NOT THE PRESCRIBED AMOUNT
  2. FLUOXETINE [Concomitant]

REACTIONS (7)
  - Myoclonus [None]
  - Toxicity to various agents [None]
  - Suicide attempt [None]
  - Convulsion [None]
  - Coma [None]
  - Muscle spasticity [None]
  - Intentional overdose [None]
